FAERS Safety Report 10057441 (Version 2)
Quarter: 2014Q2

REPORT INFORMATION
  Report Type: Spontaneous
  Country: US (occurrence: US)
  Receive Date: 20140403
  Receipt Date: 20140617
  Transmission Date: 20141212
  Serious: Yes (Death, Other)
  Sender: FDA-Public Use
  Company Number: PHHY2014US040599

PATIENT
  Age: 54 Year
  Sex: Male

DRUGS (5)
  1. BASILIXIMAB [Suspect]
     Indication: IMMUNOSUPPRESSION
  2. TACROLIMUS [Suspect]
     Indication: IMMUNOSUPPRESSION
  3. MYCOPHENOLATE MOFETIL [Suspect]
     Indication: IMMUNOSUPPRESSION
  4. RIBAVIRIN [Suspect]
     Indication: HEPATITIS C
  5. PEGYLATED INTERFERON ALFA-2A [Suspect]
     Indication: HEPATITIS C

REACTIONS (4)
  - Hepatitis cholestatic [Fatal]
  - Liver graft loss [Fatal]
  - Anaemia [Unknown]
  - Psychotic disorder [Unknown]
